FAERS Safety Report 6095103-2 (Version None)
Quarter: 2009Q1

REPORT INFORMATION
  Report Type: 
  Country: None (occurrence: None)
  Receive Date: 20090227
  Receipt Date: 20080131
  Transmission Date: 20090719
  Serious: No
  Sender: FDA-Public Use
  Company Number: A0704146A

PATIENT
  Age: 53 Year
  Sex: Female
  Weight: 97.7 kg

DRUGS (3)
  1. LAMICTAL [Suspect]
     Indication: BIPOLAR DISORDER
     Dosage: 200MG PER DAY
     Route: 048
     Dates: start: 20061101
  2. SEROQUEL [Concomitant]
     Dosage: 200MG AT NIGHT
     Route: 048
  3. ATIVAN [Concomitant]
     Dosage: 1TAB AS REQUIRED
     Route: 048

REACTIONS (1)
  - ALOPECIA [None]
